FAERS Safety Report 6019975-2 (Version None)
Quarter: 2008Q4

REPORT INFORMATION
  Report Type: 
  Country: None (occurrence: None)
  Receive Date: 20081224
  Receipt Date: 20081215
  Transmission Date: 20090506
  Serious: Yes (Hospitalization)
  Sender: FDA-Public Use
  Company Number: PHHO2008US07997

PATIENT
  Sex: Female
  Weight: 45.45 kg

DRUGS (1)
  1. CGP 57148B T35717+ [Suspect]
     Indication: SYSTEMIC SCLEROSIS
     Dosage: 400 MG, QD
     Route: 048
     Dates: start: 20080229, end: 20080626

REACTIONS (12)
  - DIASTOLIC DYSFUNCTION [None]
  - DYSPNOEA [None]
  - FLUID OVERLOAD [None]
  - HAEMOGLOBIN DECREASED [None]
  - HAEMORRHOID OPERATION [None]
  - HAEMORRHOIDAL HAEMORRHAGE [None]
  - LOWER GASTROINTESTINAL HAEMORRHAGE [None]
  - OEDEMA PERIPHERAL [None]
  - PERICARDIAL EFFUSION [None]
  - PLEURAL EFFUSION [None]
  - POLYURIA [None]
  - RECTAL PROLAPSE [None]
